FAERS Safety Report 9395066 (Version 2)
Quarter: 2013Q3

REPORT INFORMATION
  Report Type: Report from Study
  Country: BR (occurrence: BR)
  Receive Date: 20130711
  Receipt Date: 20130930
  Transmission Date: 20140515
  Serious: Yes (Hospitalization)
  Sender: FDA-Public Use
  Company Number: BR-US-EMD SERONO, INC.-7222329

PATIENT
  Sex: Female

DRUGS (6)
  1. SAIZEN [Suspect]
     Indication: MYASTHENIA GRAVIS
     Dates: start: 20121123, end: 20130514
  2. MESTINON [Concomitant]
     Indication: MYASTHENIA GRAVIS
  3. PREDNISOLONE [Concomitant]
     Indication: MYASTHENIA GRAVIS
  4. IMURAN                             /00001501/ [Concomitant]
     Indication: MYASTHENIA GRAVIS
  5. NEULEPTIL [Concomitant]
     Indication: MYASTHENIA GRAVIS
  6. PAROXETINE [Concomitant]
     Indication: MYASTHENIA GRAVIS

REACTIONS (3)
  - Respiratory failure [Unknown]
  - Off label use [Unknown]
  - Drug dose omission [Unknown]
